FAERS Safety Report 4639272-7 (Version None)
Quarter: 2005Q2

REPORT INFORMATION
  Report Type: 
  Country: None (occurrence: None)
  Receive Date: 20050418
  Receipt Date: 20050406
  Transmission Date: 20051028
  Serious: Yes (Hospitalization)
  Sender: FDA-Public Use
  Company Number: 02P-087-0201424-00

PATIENT
  Age: 36 Year
  Sex: Male

DRUGS (6)
  1. KALETRA [Suspect]
     Indication: HIV INFECTION
     Dosage: 6 CAPSULE, 1 IN 1 D, PER ORAL
     Route: 048
     Dates: start: 20031202, end: 20031203
  2. NORVIR [Suspect]
     Indication: HIV INFECTION
     Dosage: 400 MG, 1 IN 1 D, PER ORAL
     Route: 048
     Dates: start: 20010401, end: 20031202
  3. ZIDOVUDINE [Suspect]
     Indication: HIV INFECTION
     Dosage: 400 MG, 1 IN 1 D, PER ORAL
     Route: 048
     Dates: start: 20010401, end: 20031203
  4. LAMIVUDINE [Suspect]
     Indication: HIV INFECTION
     Dosage: 300 MG, 1 IN 1 D, PER ORAL
     Route: 048
     Dates: start: 20010401, end: 20031203
  5. INDINAVIR [Suspect]
     Indication: HIV INFECTION
     Dosage: 1.2 GM, 1 IN 1 D, PER ORAL
     Route: 048
     Dates: start: 20010401, end: 20031202
  6. BACTRIM [Concomitant]

REACTIONS (9)
  - ADENOMYOSIS [None]
  - BACK PAIN [None]
  - BLOOD URIC ACID INCREASED [None]
  - CALCULUS URETERIC [None]
  - GALLBLADDER DISORDER [None]
  - HAEMATURIA [None]
  - HYPERCHOLESTEROLAEMIA [None]
  - HYPERLIPIDAEMIA [None]
  - RENAL FAILURE ACUTE [None]
